FAERS Safety Report 15122700 (Version 4)
Quarter: 2018Q4

REPORT INFORMATION
  Report Type: Report from Study
  Country: JP (occurrence: JP)
  Receive Date: 20180709
  Receipt Date: 20181002
  Transmission Date: 20190204
  Serious: Yes (Other)
  Sender: FDA-Public Use
  Company Number: JP-BEH-2018092544

PATIENT
  Age: 51 Year
  Sex: Female
  Weight: 48.5 kg

DRUGS (12)
  1. AMLODIPINE [Concomitant]
     Active Substance: AMLODIPINE BESYLATE
     Route: 048
  2. PITAVASTATIN CALCIUM [Concomitant]
     Active Substance: PITAVASTATIN CALCIUM
     Route: 048
  3. KAYTWO N [Concomitant]
     Active Substance: MENATETRENONE
     Dosage: 20 MG, UNK
     Route: 042
     Dates: start: 20180519, end: 20180519
  4. GLYCEROL [Concomitant]
     Active Substance: GLYCERIN
     Dosage: UNK
     Route: 065
     Dates: start: 20180520, end: 20180525
  5. SENNOSIDE                          /00571901/ [Concomitant]
     Active Substance: SENNOSIDES A AND B
     Indication: PROPHYLAXIS
     Dosage: UNK
     Route: 048
     Dates: start: 20180521
  6. LEVOFLOXACIN. [Concomitant]
     Active Substance: LEVOFLOXACIN
     Indication: PROPHYLAXIS
     Dosage: UNK
     Route: 048
     Dates: start: 20180523
  7. TAKEPRON [Concomitant]
     Active Substance: LANSOPRAZOLE
     Dosage: UNK
     Route: 065
     Dates: start: 20180519, end: 20180521
  8. FAMOTIDINE. [Concomitant]
     Active Substance: FAMOTIDINE
     Route: 048
  9. HEPARIN [Concomitant]
     Active Substance: HEPARIN SODIUM
     Indication: DEEP VEIN THROMBOSIS
     Dosage: 10000 IU, UNK
     Route: 065
     Dates: start: 20180526, end: 20180601
  10. WARFARIN [Concomitant]
     Active Substance: WARFARIN
     Indication: DEEP VEIN THROMBOSIS
     Dosage: 3 MG, UNK
     Route: 048
     Dates: start: 20160928, end: 20180519
  11. BERIPLEX P/N [Suspect]
     Active Substance: COAGULATION FACTOR IX HUMAN\COAGULATION FACTOR VII HUMAN\COAGULATION FACTOR X HUMAN\PROTEIN C\PROTEIN S HUMAN\PROTHROMBIN
     Indication: HAEMORRHAGE
     Dosage: 1250 IU, UNK
     Route: 042
     Dates: start: 20180519
  12. LIXIANA [Concomitant]
     Active Substance: EDOXABAN TOSYLATE
     Indication: DEEP VEIN THROMBOSIS
     Dosage: 30 MG, UNK
     Route: 048
     Dates: start: 20180601

REACTIONS (1)
  - Embolism [Recovered/Resolved]

NARRATIVE: CASE EVENT DATE: 20180525
